FAERS Safety Report 11723740 (Version 1)
Quarter: 2015Q4

REPORT INFORMATION
  Report Type: Spontaneous
  Country: US (occurrence: US)
  Receive Date: 20151111
  Receipt Date: 20151111
  Transmission Date: 20160304
  Serious: No
  Sender: FDA-Public Use
  Company Number: US-PERRIGO-15US010538

PATIENT
  Age: 57 Year
  Sex: Female
  Weight: 72.56 kg

DRUGS (3)
  1. NICOTINE POLACRILEX [Suspect]
     Active Substance: NICOTINE
     Indication: SMOKING CESSATION THERAPY
     Dosage: 4 MG, 5 TO 6 TIMES DAILY
     Route: 002
     Dates: start: 2006
  2. NICOTINE POLACRILEX [Suspect]
     Active Substance: NICOTINE
     Dosage: 4 MG, 5 TO 6 TIMES DAILY PRN
     Route: 002
     Dates: start: 201502, end: 201508
  3. NICOTINE POLACRILEX [Suspect]
     Active Substance: NICOTINE
     Dosage: 4 MG, 5 TO 6 TIMES DAILY PRN
     Route: 002
     Dates: start: 201509

REACTIONS (1)
  - Nicotine dependence [Unknown]

NARRATIVE: CASE EVENT DATE: 201502
